FAERS Safety Report 11159187 (Version 1)
Quarter: 2015Q2

REPORT INFORMATION
  Report Type: Spontaneous
  Country: None (occurrence: JP)
  Receive Date: 20150603
  Receipt Date: 20150603
  Transmission Date: 20150821
  Serious: Yes (Other)
  Sender: FDA-Public Use
  Company Number: JP-ALLERGAN-1510224US

PATIENT
  Sex: Male

DRUGS (1)
  1. BOTOX [Suspect]
     Active Substance: ONABOTULINUMTOXINA
     Indication: DYSTONIA
     Dosage: UNK, SINGLE
     Route: 030

REACTIONS (7)
  - Headache [Unknown]
  - Drug ineffective [Unknown]
  - Pain in extremity [Unknown]
  - Neuralgia [Unknown]
  - Musculoskeletal pain [Unknown]
  - Spinal deformity [Unknown]
  - Dysphagia [Unknown]
